FAERS Safety Report 18538257 (Version 1)
Quarter: 2020Q4

REPORT INFORMATION
  Report Type: Spontaneous
  Country: US (occurrence: US)
  Receive Date: 20201123
  Receipt Date: 20201123
  Transmission Date: 20210114
  Serious: No
  Sender: FDA-Public Use
  Company Number: US-009507513-2010USA011579

PATIENT
  Age: 60 Year
  Sex: Male

DRUGS (17)
  1. TRAZODONE HYDROCHLORIDE. [Concomitant]
     Active Substance: TRAZODONE HYDROCHLORIDE
  2. HYDROCORTISONE. [Concomitant]
     Active Substance: HYDROCORTISONE
  3. CLONAZEPAM. [Concomitant]
     Active Substance: CLONAZEPAM
  4. NAPROXEN. [Concomitant]
     Active Substance: NAPROXEN
  5. QUETIAPINE FUMARATE. [Concomitant]
     Active Substance: QUETIAPINE FUMARATE
  6. AMBIEN [Concomitant]
     Active Substance: ZOLPIDEM TARTRATE
  7. GABAPENTIN. [Concomitant]
     Active Substance: GABAPENTIN
  8. JANUVIA [Suspect]
     Active Substance: SITAGLIPTIN PHOSPHATE
     Indication: DIABETES MELLITUS
     Dosage: 25 MILLIGRAM, ONCE DAILY
     Route: 048
     Dates: start: 2019
  9. PAROXETINE. [Concomitant]
     Active Substance: PAROXETINE
  10. ZONISAMIDE. [Concomitant]
     Active Substance: ZONISAMIDE
  11. LEXAPRO [Concomitant]
     Active Substance: ESCITALOPRAM OXALATE
  12. METFORMIN [Concomitant]
     Active Substance: METFORMIN HYDROCHLORIDE
  13. LYRICA [Concomitant]
     Active Substance: PREGABALIN
  14. OMEPRAZOLE. [Concomitant]
     Active Substance: OMEPRAZOLE
  15. ATORVASTATIN [Concomitant]
     Active Substance: ATORVASTATIN
  16. ASPIRIN. [Concomitant]
     Active Substance: ASPIRIN
  17. LOVASTATIN. [Concomitant]
     Active Substance: LOVASTATIN

REACTIONS (3)
  - Inability to afford medication [Unknown]
  - Product dose omission issue [Unknown]
  - Glycosylated haemoglobin increased [Not Recovered/Not Resolved]

NARRATIVE: CASE EVENT DATE: 202006
